FAERS Safety Report 6088904-8 (Version None)
Quarter: 2009Q1

REPORT INFORMATION
  Report Type: 
  Country: None (occurrence: None)
  Receive Date: 20090224
  Receipt Date: 20090213
  Transmission Date: 20090719
  Serious: Yes (Hospitalization, Other)
  Sender: FDA-Public Use
  Company Number: US-AMGEN-QUU331349

PATIENT
  Sex: Female
  Weight: 55.4 kg

DRUGS (4)
  1. ENBREL [Suspect]
     Indication: RHEUMATOID ARTHRITIS
     Route: 058
     Dates: start: 20060101
  2. PLAQUENIL [Concomitant]
  3. THYROID TAB [Concomitant]
  4. CALCIUM [Concomitant]

REACTIONS (6)
  - CERVICOBRACHIAL SYNDROME [None]
  - HYPERSENSITIVITY [None]
  - OEDEMA PERIPHERAL [None]
  - OSTEONECROSIS [None]
  - PREMATURE LABOUR [None]
  - RHEUMATOID ARTHRITIS [None]
